FAERS Safety Report 9314283 (Version 1)
Quarter: 2013Q2

REPORT INFORMATION
  Report Type: Spontaneous
  Country: US (occurrence: None)
  Receive Date: 20130524
  Receipt Date: 20130524
  Transmission Date: 20140414
  Serious: No
  Sender: FDA-Public Use
  Company Number: None

PATIENT
  Age: 57 Year
  Sex: Female

DRUGS (1)
  1. SIMPONI [Suspect]
     Indication: PSORIATIC ARTHROPATHY
     Dosage: 50MG MONTHLY SQ
     Route: 058
     Dates: start: 20130125, end: 20130401

REACTIONS (2)
  - Respiratory tract infection [None]
  - Localised infection [None]
